FAERS Safety Report 10426445 (Version 1)
Quarter: 2014Q3

REPORT INFORMATION
  Report Type: Spontaneous
  Country: US (occurrence: None)
  Receive Date: 20140725
  Receipt Date: 20140725
  Transmission Date: 20150326
  Serious: No
  Sender: FDA-Public Use
  Company Number: AP356-00658-SPO-US

PATIENT
  Age: 45 Year
  Sex: Female

DRUGS (1)
  1. BELVIQ [Suspect]
     Active Substance: LORCASERIN HYDROCHLORIDE
     Indication: WEIGHT DECREASED
     Route: 048
     Dates: start: 201404, end: 201404

REACTIONS (3)
  - Somnolence [None]
  - Nausea [None]
  - Headache [None]

NARRATIVE: CASE EVENT DATE: 201404
